FAERS Safety Report 11914693 (Version 1)
Quarter: 2016Q1

REPORT INFORMATION
  Report Type: Report from Study
  Country: BR (occurrence: BR)
  Receive Date: 20160113
  Receipt Date: 20160113
  Transmission Date: 20160526
  Serious: Yes (Life-Threatening, Hospitalization)
  Sender: FDA-Public Use
  Company Number: PHHY2016BR003250

PATIENT
  Sex: Female
  Weight: 70 kg

DRUGS (2)
  1. DIOVAN HCT [Suspect]
     Active Substance: HYDROCHLOROTHIAZIDE\VALSARTAN
     Indication: HYPERTENSION
     Dosage: (VALSARTN 160 MG, HYDROCHLOROTHIAZIDE 12.5 MG), QD
     Route: 048
  2. MORPHINE [Concomitant]
     Active Substance: MORPHINE
     Indication: PRODUCT USED FOR UNKNOWN INDICATION
     Dosage: UNK
     Route: 065

REACTIONS (5)
  - Facial neuralgia [Unknown]
  - Trigeminal neuralgia [Unknown]
  - Feeling abnormal [Unknown]
  - Headache [Not Recovered/Not Resolved]
  - Varicella zoster virus infection [Unknown]
